FAERS Safety Report 24200163 (Version 1)
Quarter: 2024Q3

REPORT INFORMATION
  Report Type: Spontaneous
  Country: US (occurrence: US)
  Receive Date: 20240812
  Receipt Date: 20240812
  Transmission Date: 20241017
  Serious: No
  Sender: BAYER
  Company Number: US-BAYER-2024A113966

PATIENT
  Age: 45 Year
  Sex: Female

DRUGS (1)
  1. CLIMARA PRO [Suspect]
     Active Substance: ESTRADIOL\LEVONORGESTREL
     Indication: Hormone replacement therapy
     Dosage: UNK
     Route: 062
     Dates: start: 20240806, end: 20240806

REACTIONS (3)
  - Rash [None]
  - Wrong technique in device usage process [None]
  - Device adhesion issue [None]

NARRATIVE: CASE EVENT DATE: 20240806
